FAERS Safety Report 11820069 (Version 1)
Quarter: 2015Q4

REPORT INFORMATION
  Report Type: Spontaneous
  Country: US (occurrence: None)
  Receive Date: 20151209
  Receipt Date: 20151209
  Transmission Date: 20160305
  Serious: Yes (Other)
  Sender: FDA-Public Use
  Company Number: None

PATIENT
  Age: 45 Year
  Sex: Female

DRUGS (1)
  1. XELODA [Suspect]
     Active Substance: CAPECITABINE

REACTIONS (6)
  - Nausea [None]
  - Vomiting [None]
  - Dry mouth [None]
  - Skin fissures [None]
  - Headache [None]
  - Dry skin [None]

NARRATIVE: CASE EVENT DATE: 20151201
